FAERS Safety Report 8538519-4 (Version None)
Quarter: 2012Q3

REPORT INFORMATION
  Report Type: 
  Country: None (occurrence: None)
  Receive Date: 20120718
  Receipt Date: 20120718
  Transmission Date: 20120928
  Serious: Yes (Life-Threatening, Hospitalization)
  Sender: FDA-Public Use
  Company Number: None

PATIENT
  Sex: Female
  Weight: 68.0396 kg

DRUGS (2)
  1. HUMULIN R [Suspect]
     Indication: DIABETES MELLITUS
     Dosage: SLIDING SCALE (1 UNIT PER 100 OVER 100) CHECK 6 TIMES A DAY SHOTS
     Route: 058
     Dates: start: 20120101, end: 20120601
  2. GABAPENTIN [Suspect]
     Indication: NEUROPATHY PERIPHERAL
     Dosage: 9 TIMES DAY DT ORAL
     Route: 048
     Dates: start: 20120101, end: 20120601

REACTIONS (3)
  - NO THERAPEUTIC RESPONSE [None]
  - HYPERTENSION [None]
  - HEART RATE INCREASED [None]
